FAERS Safety Report 26032695 (Version 1)
Quarter: 2025Q4

REPORT INFORMATION
  Report Type: Spontaneous
  Country: CN (occurrence: CN)
  Receive Date: 20251112
  Receipt Date: 20251112
  Transmission Date: 20260117
  Serious: Yes (Hospitalization, Other)
  Sender: TAKEDA
  Company Number: CN-HUTCHMED LIMITED-HMP2025CN02757

PATIENT
  Age: 62 Year
  Sex: Male
  Weight: 53 kg

DRUGS (9)
  1. FRUQUINTINIB [Suspect]
     Active Substance: FRUQUINTINIB
     Indication: Colon cancer
     Dosage: 5 MILLIGRAM
     Dates: start: 20250624, end: 20251015
  2. SINTILIMAB [Suspect]
     Active Substance: SINTILIMAB
     Indication: Colon cancer
     Dosage: 160 MILLIGRAM
     Dates: start: 20250624, end: 20250624
  3. SINTILIMAB [Suspect]
     Active Substance: SINTILIMAB
     Dosage: 160 MILLIGRAM
     Dates: start: 20250717, end: 20250717
  4. SINTILIMAB [Suspect]
     Active Substance: SINTILIMAB
     Dosage: 160 MILLIGRAM
     Dates: start: 20250917, end: 20250917
  5. SINTILIMAB [Suspect]
     Active Substance: SINTILIMAB
     Dosage: 160 MILLIGRAM
     Dates: start: 20251009, end: 20251009
  6. SODIUM CHLORIDE [Concomitant]
     Active Substance: SODIUM CHLORIDE
     Indication: Vehicle solution use
     Dosage: 100 MILLILITER
     Dates: start: 20250624, end: 20250624
  7. SODIUM CHLORIDE [Concomitant]
     Active Substance: SODIUM CHLORIDE
     Dosage: 100 MILLILITER
     Dates: start: 20250717, end: 20250717
  8. SODIUM CHLORIDE [Concomitant]
     Active Substance: SODIUM CHLORIDE
     Dosage: 100 MILLILITER
     Dates: start: 20250917, end: 20250917
  9. SODIUM CHLORIDE [Concomitant]
     Active Substance: SODIUM CHLORIDE
     Dosage: 100 MILLILITER
     Dates: start: 20251009, end: 20251009

REACTIONS (1)
  - Interstitial lung disease [Recovering/Resolving]

NARRATIVE: CASE EVENT DATE: 20251012
